FAERS Safety Report 9162432 (Version 2)
Quarter: 2013Q3

REPORT INFORMATION
  Report Type: Report from Study
  Country: DE (occurrence: DE)
  Receive Date: 20130314
  Receipt Date: 20130813
  Transmission Date: 20140515
  Serious: Yes (Death)
  Sender: FDA-Public Use
  Company Number: DE-UCBSA-080249

PATIENT
  Age: 74 Year
  Sex: Male

DRUGS (7)
  1. CIMZIA [Suspect]
     Indication: RHEUMATOID ARTHRITIS
     Dosage: UNKNOWN DOSE
     Dates: start: 201202, end: 201203
  2. METOPROLOL [Concomitant]
     Dosage: 47,5 (0-0-1/2)
  3. IBUPROFEN [Concomitant]
     Dosage: 200 (1-0-0)
  4. PREDNI H [Concomitant]
     Dosage: 5 (1-0-0)
  5. ASS [Concomitant]
     Dosage: 500 (1/4-0-0)
  6. KINZAL KOMP [Concomitant]
     Dosage: 80 (1/2-0-0)
  7. SALAZOSULFAPYRIDIN [Concomitant]
     Dates: start: 200201

REACTIONS (1)
  - Sudden cardiac death [Fatal]
